FAERS Safety Report 7466923-4 (Version None)
Quarter: 2011Q1

REPORT INFORMATION
  Report Type: 
  Country: None (occurrence: None)
  Receive Date: 20110302
  Receipt Date: 20101223
  Transmission Date: 20110831
  Serious: No
  Sender: FDA-Public Use
  Company Number: 163-21880-10123033

PATIENT
  Age: 78 Year
  Sex: Male

DRUGS (5)
  1. REVLIMID [Suspect]
     Indication: MULTIPLE MYELOMA
     Dosage: 25 MG, 1 IN 1 D, PO; 25 MG, 1 IN 1 D, PO; 25 MG, 1 IN 1 D, PO; 25 MG, 1 IN 1 D, PO; 15 MG, 1 IN 1 D,
     Route: 048
     Dates: start: 20060801
  2. REVLIMID [Suspect]
     Indication: MULTIPLE MYELOMA
     Dosage: 25 MG, 1 IN 1 D, PO; 25 MG, 1 IN 1 D, PO; 25 MG, 1 IN 1 D, PO; 25 MG, 1 IN 1 D, PO; 15 MG, 1 IN 1 D,
     Route: 048
     Dates: start: 20100201
  3. REVLIMID [Suspect]
     Indication: MULTIPLE MYELOMA
     Dosage: 25 MG, 1 IN 1 D, PO; 25 MG, 1 IN 1 D, PO; 25 MG, 1 IN 1 D, PO; 25 MG, 1 IN 1 D, PO; 15 MG, 1 IN 1 D,
     Route: 048
     Dates: start: 20101014
  4. REVLIMID [Suspect]
     Indication: MULTIPLE MYELOMA
     Dosage: 25 MG, 1 IN 1 D, PO; 25 MG, 1 IN 1 D, PO; 25 MG, 1 IN 1 D, PO; 25 MG, 1 IN 1 D, PO; 15 MG, 1 IN 1 D,
     Route: 048
     Dates: start: 20101101
  5. REVLIMID [Suspect]
     Indication: MULTIPLE MYELOMA
     Dosage: 25 MG, 1 IN 1 D, PO; 25 MG, 1 IN 1 D, PO; 25 MG, 1 IN 1 D, PO; 25 MG, 1 IN 1 D, PO; 15 MG, 1 IN 1 D,
     Route: 048
     Dates: start: 20071101

REACTIONS (3)
  - PLATELET COUNT DECREASED [None]
  - NERVOUSNESS [None]
  - ASTHENIA [None]
